FAERS Safety Report 8990197 (Version 2)
Quarter: 2013Q1

REPORT INFORMATION
  Report Type: Spontaneous
  Country: US (occurrence: US)
  Receive Date: 20121228
  Receipt Date: 20130104
  Transmission Date: 20140127
  Serious: Yes (Other)
  Sender: FDA-Public Use
  Company Number: US-PFIZER INC-2012330709

PATIENT
  Sex: Female

DRUGS (1)
  1. EFFEXOR XR [Suspect]
     Dosage: ^75 4 CAPSULES A DAY^

REACTIONS (10)
  - Drug withdrawal syndrome [Unknown]
  - Suicidal behaviour [Unknown]
  - Fall [Unknown]
  - Balance disorder [Unknown]
  - Visual impairment [Unknown]
  - Malaise [Unknown]
  - Crying [Unknown]
  - Conversion disorder [Unknown]
  - Vomiting [Unknown]
  - Tremor [Unknown]
